FAERS Safety Report 7832036-2 (Version None)
Quarter: 2011Q4

REPORT INFORMATION
  Report Type: 
  Country: None (occurrence: None)
  Receive Date: 20111021
  Receipt Date: 20111012
  Transmission Date: 20120403
  Serious: Yes (Other)
  Sender: FDA-Public Use
  Company Number: RU-ASTRAZENECA-2011SE62432

PATIENT
  Age: 75 Year
  Sex: Male

DRUGS (1)
  1. CRESTOR [Suspect]
     Indication: MYOCARDIAL INFARCTION
     Route: 048
     Dates: start: 20100101, end: 20100101

REACTIONS (1)
  - PURPURA [None]
